FAERS Safety Report 15013333 (Version 5)
Quarter: 2018Q4

REPORT INFORMATION
  Report Type: Report from Study
  Country: US (occurrence: US)
  Receive Date: 20180614
  Receipt Date: 20181101
  Transmission Date: 20190204
  Serious: Yes (Hospitalization, Disabling)
  Sender: FDA-Public Use
  Company Number: US-ACTELION-A-NJ2018-169721

PATIENT
  Age: 10 Month
  Sex: Male
  Weight: 11.79 kg

DRUGS (14)
  1. CLOPIDOGREL [Concomitant]
     Active Substance: CLOPIDOGREL BISULFATE
     Dosage: 1.5 MG, QD
     Dates: start: 20180205
  2. REMODULIN [Suspect]
     Active Substance: TREPROSTINIL
     Indication: PRODUCT USED FOR UNKNOWN INDICATION
     Dosage: 50 MG/KG, PER MIN
     Route: 058
     Dates: start: 20171102
  3. REMODULIN [Suspect]
     Active Substance: TREPROSTINIL
     Dosage: 38-54NG/KG/MIN
     Route: 058
  4. FUROSEMIDE. [Concomitant]
     Active Substance: FUROSEMIDE
     Dosage: 15 MG, TID
     Route: 049
     Dates: start: 20170921
  5. DIGOXIN. [Concomitant]
     Active Substance: DIGOXIN
     Dosage: 40 MCG, BID
     Route: 049
  6. DIGOXIN. [Concomitant]
     Active Substance: DIGOXIN
     Dosage: 40 MG, BID
  7. SILDENAFIL. [Concomitant]
     Active Substance: SILDENAFIL
     Dosage: 20 MG, TID
     Route: 048
     Dates: start: 20171018
  8. CHLOROTHIAZIDE. [Concomitant]
     Active Substance: CHLOROTHIAZIDE
     Dosage: 175 MG, BID
     Dates: start: 20170921
  9. SPIRONOLACTONE. [Concomitant]
     Active Substance: SPIRONOLACTONE
     Dosage: 17.5 MG, BID
     Dates: start: 20171002
  10. SPIRONOLACTONE. [Concomitant]
     Active Substance: SPIRONOLACTONE
     Dosage: 20 MG, BID
     Route: 049
  11. BOSENTAN TABLET 32 MG PED US [Suspect]
     Active Substance: BOSENTAN
     Indication: PULMONARY ARTERIAL HYPERTENSION
     Dosage: 16 MG, BID
     Route: 049
     Dates: start: 20180107
  12. BOSENTAN TABLET 32 MG PED US [Suspect]
     Active Substance: BOSENTAN
     Dosage: 5 MG, BID
     Route: 048
     Dates: start: 20171024, end: 20180106
  13. TREPROSTINIL. [Concomitant]
     Active Substance: TREPROSTINIL
     Dosage: 50 NG/KG, PER MIN
     Route: 042
     Dates: start: 20171102
  14. ASPIRIN. [Concomitant]
     Active Substance: ASPIRIN
     Dosage: 20.25 MG, QD
     Dates: start: 20170928

REACTIONS (12)
  - Pulmonary arterial hypertension [Recovering/Resolving]
  - Pyrexia [Recovered/Resolved]
  - Vascular device infection [Recovered/Resolved]
  - Flushing [Not Recovered/Not Resolved]
  - Gastrointestinal tube insertion [Recovered/Resolved]
  - Complication associated with device [Recovered/Resolved]
  - White blood cell count increased [Unknown]
  - Viral infection [Unknown]
  - Bacteraemia [Recovered/Resolved]
  - Erythema [Not Recovered/Not Resolved]
  - Infection [Recovered/Resolved]
  - Serratia infection [Recovered/Resolved]

NARRATIVE: CASE EVENT DATE: 20171024
